FAERS Safety Report 19808881 (Version 1)
Quarter: 2021Q3

REPORT INFORMATION
  Report Type: Spontaneous
  Country: JP (occurrence: JP)
  Receive Date: 20210908
  Receipt Date: 20210908
  Transmission Date: 20211014
  Serious: Yes (Hospitalization)
  Sender: FDA-Public Use
  Company Number: JP-NEUROCRINE BIOSCIENCES INC.-2021NBI05053

PATIENT

DRUGS (4)
  1. LEVODOPA [Concomitant]
     Active Substance: LEVODOPA
     Dosage: 300 MILLIGRAM
     Route: 048
     Dates: start: 2020
  2. AMANTADINE HYDROCHLORIDE. [Concomitant]
     Active Substance: AMANTADINE HYDROCHLORIDE
     Dosage: 50 MILLIGRAM
     Dates: start: 2020
  3. LEVODOPA [Concomitant]
     Active Substance: LEVODOPA
     Dosage: 350 MILLIGRAM
     Dates: start: 2020
  4. ONGENTYS [Suspect]
     Active Substance: OPICAPONE
     Indication: PARKINSON^S DISEASE
     Dosage: 25 MILLIGRAM, DAILY
     Route: 048
     Dates: start: 202010, end: 202010

REACTIONS (3)
  - Decreased appetite [Unknown]
  - Myalgia [Recovered/Resolved]
  - Depressive symptom [Unknown]

NARRATIVE: CASE EVENT DATE: 202010
